FAERS Safety Report 4623448-9 (Version None)
Quarter: 2005Q1

REPORT INFORMATION
  Report Type: 
  Country: None (occurrence: None)
  Receive Date: 20050330
  Receipt Date: 20050317
  Transmission Date: 20050727
  Serious: Yes (Death, Hospitalization)
  Sender: FDA-Public Use
  Company Number: 2005046714

PATIENT
  Age: 90 Year
  Sex: Female
  Weight: 48 kg

DRUGS (3)
  1. FRAGMIN [Suspect]
     Indication: ILL-DEFINED DISORDER
     Dosage: 0.2 ML (1 IN 1 D), SUBCUTANEOUS
     Route: 058
     Dates: start: 20041129, end: 20041223
  2. BISOPROLOL FUMARATE [Suspect]
     Indication: ILL-DEFINED DISORDER
     Dosage: 1.25 MG (1 IN 1 D), ORAL
     Route: 048
     Dates: start: 20041129, end: 20041222
  3. CLOPIDOGREL BISULFATE [Suspect]
     Indication: ILL-DEFINED DISORDER
     Dosage: 75 MG (1 IN 1 D), ORAL
     Route: 048
     Dates: start: 20041129, end: 20041221

REACTIONS (4)
  - COAGULATION FACTOR V LEVEL DECREASED [None]
  - GENERAL PHYSICAL HEALTH DETERIORATION [None]
  - HEPATITIS [None]
  - OCULAR ICTERUS [None]
